FAERS Safety Report 5266876-3 (Version None)
Quarter: 2007Q1

REPORT INFORMATION
  Report Type: 
  Country: None (occurrence: None)
  Receive Date: 20061213
  Receipt Date: 20020502
  Transmission Date: 20070707
  Serious: No
  Sender: FDA-Public Use
  Company Number: 2002UW06225

PATIENT
  Age: 43 Year
  Sex: Female

DRUGS (4)
  1. TAMOXIFEN CITRATE [Suspect]
     Indication: BREAST CANCER
     Dosage: 10 MG BID PO
     Route: 048
     Dates: start: 20020201, end: 20020501
  2. VITAMIN E [Concomitant]
  3. CALCIUM [Concomitant]
  4. BELLERGAL-S [Concomitant]

REACTIONS (2)
  - LIVER FUNCTION TEST ABNORMAL [None]
  - STEVENS-JOHNSON SYNDROME [None]
